FAERS Safety Report 9205459 (Version 1)
Quarter: 2013Q2

REPORT INFORMATION
  Report Type: Spontaneous
  Country: US (occurrence: US)
  Receive Date: 20130403
  Receipt Date: 20130403
  Transmission Date: 20140414
  Serious: Yes (Other)
  Sender: FDA-Public Use
  Company Number: US-AMGEN-USASP2013022223

PATIENT
  Age: 43 Year
  Sex: Female

DRUGS (1)
  1. ENBREL [Suspect]
     Indication: RHEUMATOID ARTHRITIS
     Dosage: 50 MG, QWK
     Dates: start: 20121201, end: 20130116

REACTIONS (7)
  - Meningitis aseptic [Recovered/Resolved]
  - Headache [Unknown]
  - Lethargy [Unknown]
  - Swelling [Unknown]
  - Tendonitis [Unknown]
  - Pain in extremity [Unknown]
  - Arthralgia [Unknown]
